FAERS Safety Report 8250578-5 (Version None)
Quarter: 2012Q2

REPORT INFORMATION
  Report Type: 
  Country: None (occurrence: None)
  Receive Date: 20120402
  Receipt Date: 20120402
  Transmission Date: 20120825
  Serious: No
  Sender: FDA-Public Use
  Company Number: None

PATIENT
  Age: 51 Year
  Sex: Male
  Weight: 115.66 kg

DRUGS (1)
  1. ANDRODERM [Suspect]
     Indication: BLOOD TESTOSTERONE DECREASED
     Dosage: 2.5MG
     Route: 062
     Dates: start: 20111110, end: 20120307

REACTIONS (1)
  - TESTICULAR PAIN [None]
